FAERS Safety Report 5904707-6 (Version None)
Quarter: 2008Q3

REPORT INFORMATION
  Report Type: 
  Country: None (occurrence: None)
  Receive Date: 20080909
  Receipt Date: 20080430
  Transmission Date: 20090109
  Serious: Yes (Hospitalization)
  Sender: FDA-Public Use
  Company Number: 163-20785-08042101

PATIENT
  Sex: Male

DRUGS (1)
  1. THALOMID [Suspect]
     Indication: MULTIPLE MYELOMA
     Dosage: 300 MG, 3 IN 1 D, ORAL
     Route: 048
     Dates: start: 20050901

REACTIONS (2)
  - DYSPNOEA [None]
  - PNEUMONIA [None]
